FAERS Safety Report 12935570 (Version 1)
Quarter: 2016Q4

REPORT INFORMATION
  Report Type: Spontaneous
  Country: CN (occurrence: CN)
  Receive Date: 20161114
  Receipt Date: 20161114
  Transmission Date: 20170207
  Serious: Yes (Hospitalization)
  Sender: FDA-Public Use
  Company Number: CN-JNJFOC-20161101059

PATIENT
  Age: 3 Day
  Sex: Female
  Weight: 1.16 kg

DRUGS (2)
  1. MOTRIN [Suspect]
     Active Substance: IBUPROFEN
     Route: 045
  2. MOTRIN [Suspect]
     Active Substance: IBUPROFEN
     Indication: PATENT DUCTUS ARTERIOSUS
     Route: 045
     Dates: start: 20160910, end: 20160911

REACTIONS (4)
  - Product use issue [Recovering/Resolving]
  - Coagulation disorder neonatal [Recovering/Resolving]
  - Incorrect route of drug administration [Recovering/Resolving]
  - Off label use [Recovering/Resolving]

NARRATIVE: CASE EVENT DATE: 20160910
